FAERS Safety Report 23781618 (Version 1)
Quarter: 2024Q2

REPORT INFORMATION
  Report Type: Spontaneous
  Country: DE (occurrence: DE)
  Receive Date: 20240425
  Receipt Date: 20240425
  Transmission Date: 20240716
  Serious: Yes (Death)
  Sender: FDA-Public Use
  Company Number: DE-AstraZeneca-2019SF43478

PATIENT
  Age: 26 Year
  Sex: Male
  Weight: 85 kg

DRUGS (8)
  1. GLECAPREVIR\PIBRENTASVIR [Suspect]
     Active Substance: GLECAPREVIR\PIBRENTASVIR
     Indication: Chronic hepatitis C
     Route: 048
     Dates: start: 20190725
  2. IVY EXTRACT [Concomitant]
     Active Substance: IVY EXTRACT
     Indication: Product used for unknown indication
     Dosage: COUGH LIQUID
     Route: 065
     Dates: start: 20190919, end: 20190924
  3. QUETIAPINE [Suspect]
     Active Substance: QUETIAPINE
     Indication: Schizoaffective disorder
     Dosage: 50.0MG UNKNOWN
     Route: 048
     Dates: start: 20180824
  4. MORPHINE SULFATE [Suspect]
     Active Substance: MORPHINE SULFATE
     Indication: Drug dependence
     Dosage: 50.0MG?LAST ADMIN DATE- AUG 2018
     Route: 048
     Dates: start: 20180824
  5. MORPHINE SULFATE [Suspect]
     Active Substance: MORPHINE SULFATE
     Indication: Drug dependence
     Route: 048
     Dates: start: 20180831
  6. PANTOPRAZOLE [Concomitant]
     Active Substance: PANTOPRAZOLE
     Indication: Prophylaxis
     Route: 065
     Dates: start: 20190917, end: 20190920
  7. CLINDAMYCIN [Concomitant]
     Active Substance: CLINDAMYCIN
     Indication: Abscess limb
     Route: 065
     Dates: start: 20190918, end: 20190920
  8. CLARITHROMYCIN [Concomitant]
     Active Substance: CLARITHROMYCIN
     Indication: Abscess limb
     Route: 065
     Dates: start: 20190917, end: 20190917

REACTIONS (4)
  - Fall [Fatal]
  - Drug screen positive [Fatal]
  - Poisoning [Fatal]
  - Urine alcohol test positive [Fatal]

NARRATIVE: CASE EVENT DATE: 20200221
